FAERS Safety Report 6107670-0 (Version None)
Quarter: 2009Q1

REPORT INFORMATION
  Report Type: 
  Country: None (occurrence: None)
  Receive Date: 20090306
  Receipt Date: 20090306
  Transmission Date: 20090719
  Serious: Yes (Hospitalization)
  Sender: FDA-Public Use
  Company Number: None

PATIENT
  Age: 32 Year
  Sex: Female
  Weight: 59.8748 kg

DRUGS (2)
  1. ENBREL [Suspect]
     Indication: DISEASE RECURRENCE
     Dosage: 50MG WEEKLY SQ 057
     Dates: start: 20081127
  2. ENBREL [Suspect]
     Indication: POLYCHONDRITIS
     Dosage: 50MG WEEKLY SQ 057
     Dates: start: 20081127

REACTIONS (5)
  - DEHYDRATION [None]
  - NAUSEA [None]
  - PAIN [None]
  - PYREXIA [None]
  - VOMITING [None]
